FAERS Safety Report 9214116 (Version 1)
Quarter: 2013Q2

REPORT INFORMATION
  Report Type: Report from Study
  Country: CA (occurrence: CA)
  Receive Date: 20130405
  Receipt Date: 20130405
  Transmission Date: 20140414
  Serious: Yes (Other)
  Sender: FDA-Public Use
  Company Number: CA-JNJFOC-20130400285

PATIENT
  Age: 56 Year
  Sex: Male
  Weight: 95 kg

DRUGS (7)
  1. REMICADE [Suspect]
     Indication: COLITIS ULCERATIVE
     Route: 042
     Dates: start: 20111012
  2. CALCIUM [Concomitant]
     Route: 065
  3. VITAMIN D [Concomitant]
     Route: 065
  4. OMEPRAZOLE [Concomitant]
     Route: 065
  5. CRESTOR [Concomitant]
     Route: 065
  6. ZANTAC [Concomitant]
     Route: 065
  7. JANUVIA [Concomitant]
     Route: 065

REACTIONS (4)
  - Polyp [Recovered/Resolved]
  - Haematochezia [Not Recovered/Not Resolved]
  - Diarrhoea [Not Recovered/Not Resolved]
  - Abdominal pain [Not Recovered/Not Resolved]
